FAERS Safety Report 9909081 (Version 1)
Quarter: 2014Q1

REPORT INFORMATION
  Report Type: Spontaneous
  Country: US (occurrence: None)
  Receive Date: 20140214
  Receipt Date: 20140214
  Transmission Date: 20141002
  Serious: No
  Sender: FDA-Public Use
  Company Number: None

PATIENT
  Age: 75 Year
  Sex: Male

DRUGS (12)
  1. QUETIAPINE [Suspect]
     Route: 048
  2. TRAZADONE [Concomitant]
  3. XANAX [Concomitant]
  4. OMEPRAZOLE [Concomitant]
  5. BYSTOLIC [Concomitant]
  6. ENALAPRIL [Concomitant]
  7. AMLODIPINE [Concomitant]
  8. SIMVASATATIN [Concomitant]
  9. FISH OIL [Concomitant]
  10. TAMSULOSIN [Concomitant]
  11. AMBIEN [Concomitant]
  12. DEPAKOTE [Concomitant]

REACTIONS (1)
  - Urinary retention [None]
